FAERS Safety Report 10144301 (Version 2)
Quarter: 2014Q2

REPORT INFORMATION
  Report Type: Spontaneous
  Country: US (occurrence: US)
  Receive Date: 20140430
  Receipt Date: 20140611
  Transmission Date: 20141212
  Serious: No
  Sender: FDA-Public Use
  Company Number: US-GILEAD-2014-0100784

PATIENT
  Age: 55 Year
  Sex: Male

DRUGS (6)
  1. SOVALDI [Suspect]
     Indication: HEPATITIS C
     Dosage: 400 MG, BID
     Route: 048
     Dates: start: 20140411, end: 20140426
  2. SOVALDI [Suspect]
     Dosage: 400 MG, QD
     Route: 048
     Dates: start: 20140426
  3. RIBAVIRIN [Concomitant]
     Indication: HEPATITIS C
     Dosage: 600 MG, BID
     Route: 048
     Dates: start: 20140411
  4. HYDRALAZINE/HYDROCHLOROTHIAZIDE [Concomitant]
     Indication: HYPERTENSION
  5. ALTACE [Concomitant]
     Indication: HYPERTENSION
  6. METOPROLOL [Concomitant]
     Indication: PORTAL HYPERTENSIVE GASTROPATHY

REACTIONS (1)
  - Overdose [Recovered/Resolved]
